FAERS Safety Report 7226265-9 (Version None)
Quarter: 2011Q1

REPORT INFORMATION
  Report Type: 
  Country: None (occurrence: None)
  Receive Date: 20110114
  Receipt Date: 20110105
  Transmission Date: 20110831
  Serious: Yes (Other)
  Sender: FDA-Public Use
  Company Number: PHHY2011JP01133

PATIENT
  Age: 16 Year
  Sex: Male

DRUGS (1)
  1. TACROLIMUS [Suspect]
     Dosage: UNK

REACTIONS (5)
  - RENAL DISORDER [None]
  - TREMOR [None]
  - ACUTE MYELOID LEUKAEMIA [None]
  - HYPERTENSION [None]
  - NEUROTOXICITY [None]
